FAERS Safety Report 6988148-9 (Version None)
Quarter: 2010Q3

REPORT INFORMATION
  Report Type: 
  Country: None (occurrence: None)
  Receive Date: 20100916
  Receipt Date: 20100909
  Transmission Date: 20110219
  Serious: Yes (Hospitalization, Other)
  Sender: FDA-Public Use
  Company Number: PHHO2010KR12543

PATIENT
  Sex: Male
  Weight: 171.6 kg

DRUGS (11)
  1. ALISKIREN ALI+TAB [Suspect]
     Indication: ACUTE MYOCARDIAL INFARCTION
     Dosage: 300 MG, QD
     Route: 048
     Dates: start: 20081106
  2. VALSARTAN [Concomitant]
     Indication: MYOCARDIAL INFARCTION
     Dosage: UNK
  3. CLOPIDOGREL [Concomitant]
     Indication: MYOCARDIAL INFARCTION
     Dosage: UNK
  4. CLONAZEPAM [Concomitant]
     Indication: PANIC DISORDER
     Dosage: UNK
  5. CARVEDILOL [Concomitant]
     Indication: MYOCARDIAL INFARCTION
     Dosage: UNK
  6. METOPROLOL TARTRATE [Concomitant]
     Indication: MYOCARDIAL INFARCTION
     Dosage: UNK
  7. ATORVASTATIN CALCIUM [Concomitant]
     Indication: MYOCARDIAL INFARCTION
     Dosage: UNK
  8. TORSEMIDE [Concomitant]
     Indication: MYOCARDIAL INFARCTION
     Dosage: UNK
  9. ALPRAZOLAM [Concomitant]
     Indication: PANIC DISORDER
     Dosage: UNK
  10. PAROXETINE [Concomitant]
     Indication: PANIC DISORDER
     Dosage: UNK
  11. ASPIRIN [Concomitant]
     Indication: MYOCARDIAL INFARCTION
     Dosage: UNK

REACTIONS (7)
  - ASCITES [None]
  - COLON CANCER METASTATIC [None]
  - COLON CANCER STAGE IV [None]
  - GASTRITIS [None]
  - HAEMATOCHEZIA [None]
  - METASTASES TO LIVER [None]
  - THYROID NEOPLASM [None]
